FAERS Safety Report 9903707 (Version 1)
Quarter: 2014Q1

REPORT INFORMATION
  Report Type: Report from Study
  Country: US (occurrence: US)
  Receive Date: 20140217
  Receipt Date: 20140217
  Transmission Date: 20141002
  Serious: Yes (Other)
  Sender: FDA-Public Use
  Company Number: US-ROCHE-1350391

PATIENT
  Sex: Male

DRUGS (2)
  1. LUCENTIS [Suspect]
     Indication: MACULAR DEGENERATION
     Dosage: LEFT EYE
     Route: 065
  2. TERAZOSIN [Concomitant]
     Route: 048

REACTIONS (5)
  - Blindness [Unknown]
  - Retinal vascular thrombosis [Unknown]
  - Eye pain [Unknown]
  - Vision blurred [Recovered/Resolved]
  - Musculoskeletal stiffness [Not Recovered/Not Resolved]
